FAERS Safety Report 8796656 (Version 5)
Quarter: 2014Q4

REPORT INFORMATION
  Report Type: Report from Study
  Country: US (occurrence: US)
  Receive Date: 20120919
  Receipt Date: 20141028
  Transmission Date: 20150529
  Serious: Yes (Hospitalization)
  Sender: FDA-Public Use
  Company Number: US-ASTRAZENECA-2012SE72133

PATIENT
  Age: 26517 Day
  Sex: Male

DRUGS (18)
  1. LISINOPRIL. [Concomitant]
     Active Substance: LISINOPRIL
     Indication: HYPERTENSION
     Route: 048
     Dates: end: 20140110
  2. ASA [Concomitant]
     Active Substance: ASPIRIN
     Route: 048
     Dates: start: 20120914
  3. METFORMIN [Concomitant]
     Active Substance: METFORMIN HYDROCHLORIDE
     Indication: TYPE 2 DIABETES MELLITUS
     Route: 048
     Dates: start: 20120630
  4. AZD6140 [Suspect]
     Active Substance: TICAGRELOR
     Indication: CORONARY ARTERY DISEASE
     Route: 048
     Dates: start: 20120630
  5. AMBIEN [Concomitant]
     Active Substance: ZOLPIDEM TARTRATE
     Indication: SEDATIVE THERAPY
     Route: 048
     Dates: start: 20120627, end: 20120628
  6. METFORMIN [Concomitant]
     Active Substance: METFORMIN HYDROCHLORIDE
     Indication: BLOOD GLUCOSE ABNORMAL
     Route: 048
     Dates: end: 20120627
  7. ASA [Concomitant]
     Active Substance: ASPIRIN
     Route: 048
     Dates: start: 20120124, end: 20120627
  8. GLYBURIDE. [Concomitant]
     Active Substance: GLYBURIDE
     Indication: TYPE 2 DIABETES MELLITUS
     Route: 048
  9. GLYBURIDE. [Concomitant]
     Active Substance: GLYBURIDE
     Indication: BLOOD GLUCOSE ABNORMAL
     Route: 048
  10. PRAVASTATIN [Concomitant]
     Active Substance: PRAVASTATIN\PRAVASTATIN SODIUM
     Indication: HYPERCHOLESTEROLAEMIA
     Route: 048
     Dates: end: 20120627
  11. ASA [Concomitant]
     Active Substance: ASPIRIN
     Route: 048
     Dates: end: 20120123
  12. METFORMIN [Concomitant]
     Active Substance: METFORMIN HYDROCHLORIDE
     Indication: TYPE 2 DIABETES MELLITUS
     Route: 048
     Dates: end: 20120627
  13. OMEPRAZOLE. [Concomitant]
     Active Substance: OMEPRAZOLE
     Indication: GASTRITIS PROPHYLAXIS
     Route: 048
     Dates: end: 20120627
  14. GEMFIBROZIL. [Concomitant]
     Active Substance: GEMFIBROZIL
     Indication: HYPERCHOLESTEROLAEMIA
     Route: 048
  15. COREG [Concomitant]
     Active Substance: CARVEDILOL
     Indication: HYPERTENSION
     Route: 048
  16. COREG [Concomitant]
     Active Substance: CARVEDILOL
     Indication: MYOCARDIAL INFARCTION
     Route: 048
  17. AZD6140 [Suspect]
     Active Substance: TICAGRELOR
     Indication: CORONARY ARTERY DISEASE
     Route: 048
     Dates: start: 20120123, end: 20120627
  18. METFORMIN [Concomitant]
     Active Substance: METFORMIN HYDROCHLORIDE
     Indication: BLOOD GLUCOSE ABNORMAL
     Route: 048
     Dates: start: 20120630

REACTIONS (2)
  - Gastrointestinal vascular malformation [Recovered/Resolved]
  - Iron deficiency anaemia [Recovered/Resolved]

NARRATIVE: CASE EVENT DATE: 20120627
